FAERS Safety Report 17493894 (Version 1)
Quarter: 2020Q1

REPORT INFORMATION
  Report Type: Spontaneous
  Country: US (occurrence: US)
  Receive Date: 20200304
  Receipt Date: 20200304
  Transmission Date: 20200409
  Serious: Yes (Death, Hospitalization)
  Sender: FDA-Public Use
  Company Number: US-TEVA-2020-US-1193372

PATIENT
  Age: 29 Year
  Sex: Male

DRUGS (9)
  1. ATOMOXETINE. [Suspect]
     Active Substance: ATOMOXETINE HYDROCHLORIDE
     Indication: COMPLETED SUICIDE
     Route: 048
  2. HYDROXYZINE [Suspect]
     Active Substance: HYDROXYZINE HYDROCHLORIDE
     Indication: COMPLETED SUICIDE
     Route: 048
  3. PAROXETINE. [Suspect]
     Active Substance: PAROXETINE
     Indication: COMPLETED SUICIDE
     Route: 048
  4. LITHIUM. [Concomitant]
     Active Substance: LITHIUM
     Route: 065
  5. CLOMIPRAMINE [Suspect]
     Active Substance: CLOMIPRAMINE
     Indication: COMPLETED SUICIDE
     Route: 048
  6. CLONAZEPAM. [Suspect]
     Active Substance: CLONAZEPAM
     Indication: COMPLETED SUICIDE
     Route: 048
  7. DIPHENHYDRAMINE. [Suspect]
     Active Substance: DIPHENHYDRAMINE
     Indication: COMPLETED SUICIDE
     Route: 048
  8. CETIRIZINE [Suspect]
     Active Substance: CETIRIZINE HYDROCHLORIDE
     Indication: COMPLETED SUICIDE
     Route: 048
  9. PERPHENAZINE. [Suspect]
     Active Substance: PERPHENAZINE
     Indication: COMPLETED SUICIDE
     Route: 048

REACTIONS (6)
  - Bradycardia [Fatal]
  - Completed suicide [Fatal]
  - Toxicity to various agents [Fatal]
  - Seizure [Fatal]
  - Atrioventricular block [Fatal]
  - Cardiac arrest [Fatal]
